FAERS Safety Report 9463665 (Version 1)
Quarter: 2013Q3

REPORT INFORMATION
  Report Type: Report from Study
  Country: AR (occurrence: AR)
  Receive Date: 20130819
  Receipt Date: 20130819
  Transmission Date: 20140515
  Serious: Yes (Other)
  Sender: FDA-Public Use
  Company Number: PHHY2013AR088457

PATIENT
  Sex: Female

DRUGS (2)
  1. DIOVAN D [Suspect]
     Dosage: 1 DF (160/12.5MG) DAILY
     Route: 048
  2. VOLTAREN [Suspect]
     Dosage: 5 MG, DAILY

REACTIONS (4)
  - Cataract [Unknown]
  - Carpal tunnel syndrome [Unknown]
  - Ocular hyperaemia [Unknown]
  - Osteoarthritis [Unknown]
